FAERS Safety Report 6450462-3 (Version None)
Quarter: 2009Q4

REPORT INFORMATION
  Report Type: 
  Country: None (occurrence: None)
  Receive Date: 20091123
  Receipt Date: 20090730
  Transmission Date: 20100525
  Serious: No
  Sender: FDA-Public Use
  Company Number: US-BAYER-200930171NA

PATIENT
  Age: 54 Year
  Sex: Male
  Weight: 95 kg

DRUGS (4)
  1. ULTRAVIST 300 [Suspect]
     Indication: COMPUTERISED TOMOGRAM ABDOMEN
     Dosage: TOTAL DAILY DOSE: 100 ML  UNIT DOSE: 100 ML
     Route: 042
     Dates: start: 20090724, end: 20090724
  2. BLOOD PRESSURE MEDICATION [Concomitant]
  3. LIPITOR [Concomitant]
  4. EYE DROPS FOR GLAUCOMA [Concomitant]

REACTIONS (6)
  - AFFECT LABILITY [None]
  - COUGH [None]
  - DIZZINESS [None]
  - NASAL CONGESTION [None]
  - PRURITUS [None]
  - URTICARIA [None]
